FAERS Safety Report 13434517 (Version 1)
Quarter: 2017Q2

REPORT INFORMATION
  Report Type: Spontaneous
  Country: US (occurrence: US)
  Receive Date: 20170412
  Receipt Date: 20170412
  Transmission Date: 20170830
  Serious: Yes (Other)
  Sender: FDA-Public Use
  Company Number: None

PATIENT
  Age: 63 Year
  Sex: Female
  Weight: 54 kg

DRUGS (1)
  1. SERMORELIN ACETATE. [Suspect]
     Active Substance: SERMORELIN ACETATE
     Indication: PRODUCT USED FOR UNKNOWN INDICATION
     Dosage: QUANTITY:.1 INJECTION(S);?
     Route: 058
     Dates: start: 20170411, end: 20170412

REACTIONS (7)
  - Genital burning sensation [None]
  - Therapy cessation [None]
  - Burning sensation [None]
  - Pruritus [None]
  - Nervousness [None]
  - Hypersensitivity [None]
  - Chest discomfort [None]

NARRATIVE: CASE EVENT DATE: 20170411
